FAERS Safety Report 8165377 (Version 2)
Quarter: 2013Q4

REPORT INFORMATION
  Report Type: Spontaneous
  Country: US (occurrence: US)
  Receive Date: 20111003
  Receipt Date: 20131125
  Transmission Date: 20140711
  Serious: Yes (Other)
  Sender: FDA-Public Use
  Company Number: US-JNJFOC-20110911729

PATIENT
  Sex: Male
  Weight: 90.72 kg

DRUGS (10)
  1. UNSPECIFIED FENTANYL TRANSDERMAL PATCH [Suspect]
     Indication: NECK PAIN
     Route: 062
     Dates: start: 2011, end: 2011
  2. UNSPECIFIED FENTANYL TRANSDERMAL PATCH [Suspect]
     Indication: BACK PAIN
     Route: 062
     Dates: start: 2011, end: 2011
  3. DURAGESIC [Suspect]
     Indication: NECK PAIN
     Route: 062
     Dates: start: 201107
  4. DURAGESIC [Suspect]
     Indication: BACK PAIN
     Route: 062
     Dates: start: 201107
  5. WATSON FENTANYL TRANSDERMAL SYSTEM [Suspect]
     Indication: NECK PAIN
     Route: 062
     Dates: start: 2011, end: 201107
  6. WATSON FENTANYL TRANSDERMAL SYSTEM [Suspect]
     Indication: BACK PAIN
     Route: 062
     Dates: start: 2011, end: 201107
  7. NEXIUM [Concomitant]
     Indication: GASTROOESOPHAGEAL REFLUX DISEASE
     Route: 048
  8. DILAUDID [Concomitant]
     Indication: PAIN
     Route: 048
     Dates: start: 201004
  9. BLOOD PRESSURE MEDICATION NOS [Concomitant]
     Indication: BLOOD PRESSURE
     Route: 048
     Dates: start: 2001
  10. GOUT MEDICATIONS [Concomitant]
     Indication: GOUT
     Route: 048
     Dates: start: 2001

REACTIONS (14)
  - Body height decreased [Not Recovered/Not Resolved]
  - Gout [Recovered/Resolved]
  - Euphoric mood [Recovered/Resolved]
  - Product quality issue [Recovered/Resolved]
  - Application site erythema [Recovered/Resolved]
  - Application site irritation [Recovered/Resolved]
  - Application site rash [Recovered/Resolved]
  - Inappropriate schedule of drug administration [Recovered/Resolved]
  - Feeling abnormal [Recovered/Resolved]
  - Tremor [Recovered/Resolved]
  - Pruritus [Recovered/Resolved]
  - Wrong technique in drug usage process [Not Recovered/Not Resolved]
  - Drug administered at inappropriate site [Not Recovered/Not Resolved]
  - Product quality issue [Unknown]
